FAERS Safety Report 9822651 (Version 2)
Quarter: 2014Q1

REPORT INFORMATION
  Report Type: Report from Study
  Country: US (occurrence: US)
  Receive Date: 20140116
  Receipt Date: 20140118
  Transmission Date: 20141002
  Serious: Yes (Hospitalization)
  Sender: FDA-Public Use
  Company Number: US-ABBVIE-14P-163-1187112-00

PATIENT
  Age: 36 Year
  Sex: Female
  Weight: 90.35 kg

DRUGS (12)
  1. HUMIRA [Suspect]
     Indication: CROHN^S DISEASE
     Route: 058
     Dates: start: 201304, end: 201310
  2. HUMIRA [Suspect]
     Route: 058
     Dates: start: 201310, end: 20131130
  3. LIBRAX [Concomitant]
     Indication: MUSCLE SPASMS
  4. LIBRAX [Concomitant]
     Indication: ANXIETY
  5. LIBRAX [Concomitant]
     Indication: CROHN^S DISEASE
  6. ASTAPRO [Concomitant]
     Indication: ASTHMA
  7. NASONEX [Concomitant]
     Indication: RHINITIS
  8. ASMANEX [Concomitant]
     Indication: ASTHMA
  9. ALBUTEROL [Concomitant]
     Indication: ASTHMA
  10. HYDROCODONE [Concomitant]
     Indication: ABDOMINAL PAIN
  11. BUSPAR [Concomitant]
     Indication: ANXIETY
  12. PHENERGAN [Concomitant]
     Indication: VOMITING
     Dosage: PRN

REACTIONS (3)
  - Impaired gastric emptying [Recovered/Resolved]
  - Crohn^s disease [Recovered/Resolved]
  - Herpes zoster [Recovered/Resolved]
